FAERS Safety Report 4908191-0 (Version None)
Quarter: 2006Q1

REPORT INFORMATION
  Report Type: 
  Country: None (occurrence: None)
  Receive Date: 20060210
  Receipt Date: 20060131
  Transmission Date: 20060701
  Serious: Yes (Hospitalization)
  Sender: FDA-Public Use
  Company Number: FR-JNJFOC-20060200089

PATIENT
  Age: 82 Year
  Sex: Female
  Weight: 60 kg

DRUGS (3)
  1. HALDOL [Suspect]
     Route: 048
  2. HALDOL [Suspect]
     Indication: DELUSION
     Route: 048
  3. EFFEXOR [Concomitant]
     Route: 048

REACTIONS (3)
  - HAEMATURIA [None]
  - URINARY RETENTION [None]
  - URINARY TRACT INFECTION [None]
